FAERS Safety Report 13801570 (Version 1)
Quarter: 2017Q3

REPORT INFORMATION
  Report Type: Spontaneous
  Country: IT (occurrence: IT)
  Receive Date: 20170727
  Receipt Date: 20170727
  Transmission Date: 20171127
  Serious: Yes (Hospitalization, Disabling)
  Sender: FDA-Public Use
  Company Number: PHHY2017IT107865

PATIENT
  Age: 38 Year
  Sex: Female

DRUGS (2)
  1. SENNA [Interacting]
     Active Substance: SENNA LEAF\SENNOSIDES\SENNOSIDES A AND B
     Indication: PRODUCT USED FOR UNKNOWN INDICATION
     Route: 065
  2. FUROSEMIDE. [Suspect]
     Active Substance: FUROSEMIDE
     Indication: PRODUCT USED FOR UNKNOWN INDICATION
     Route: 065

REACTIONS (11)
  - Paralysis [Recovered/Resolved]
  - Drug abuse [Unknown]
  - Rhabdomyolysis [Recovered/Resolved]
  - Drug interaction [Unknown]
  - Blood creatine phosphokinase increased [Unknown]
  - Toxicity to various agents [Unknown]
  - Conduction disorder [Recovered/Resolved]
  - Muscular weakness [Recovered/Resolved]
  - Muscle atrophy [Recovered/Resolved]
  - Muscle necrosis [Recovered/Resolved]
  - Myalgia [Recovered/Resolved]
